FAERS Safety Report 10640166 (Version 1)
Quarter: 2014Q4

REPORT INFORMATION
  Report Type: Spontaneous
  Country: GB (occurrence: GB)
  Receive Date: 20141209
  Receipt Date: 20141209
  Transmission Date: 20150529
  Serious: Yes (Hospitalization)
  Sender: FDA-Public Use
  Company Number: GB-SHIRE-GB201408528

PATIENT
  Age: 62 Year
  Sex: Male

DRUGS (2)
  1. XAGRID [Suspect]
     Active Substance: ANAGRELIDE HYDROCHLORIDE
     Indication: THROMBOCYTOSIS
     Dosage: 1 MG (0.5MG CAPSULE X TWO), 2X/DAY:BID
     Route: 048
     Dates: start: 2014
  2. XAGRID [Suspect]
     Active Substance: ANAGRELIDE HYDROCHLORIDE
     Dosage: UNK, UNKNOWN
     Route: 048
     Dates: start: 201401, end: 2014

REACTIONS (2)
  - Unevaluable event [Unknown]
  - Nocturia [Unknown]

NARRATIVE: CASE EVENT DATE: 2014
